FAERS Safety Report 25348269 (Version 1)
Quarter: 2025Q2

REPORT INFORMATION
  Report Type: Spontaneous
  Country: US (occurrence: US)
  Receive Date: 20250522
  Receipt Date: 20250522
  Transmission Date: 20250716
  Serious: Yes (Death, Other)
  Sender: AMNEAL
  Company Number: US-AMNEAL PHARMACEUTICALS-2025-AMRX-01879

PATIENT
  Age: 20 Year
  Sex: Female
  Weight: 49 kg

DRUGS (1)
  1. ISOTRETINOIN [Suspect]
     Active Substance: ISOTRETINOIN
     Indication: Product used for unknown indication
     Dosage: 40 MILLIGRAM, 1 /DAY
     Route: 048
     Dates: start: 20250410

REACTIONS (5)
  - Death [Fatal]
  - Deafness [Unknown]
  - Blindness [Unknown]
  - Orthostatic tremor [Unknown]
  - Headache [Unknown]

NARRATIVE: CASE EVENT DATE: 20250422
